FAERS Safety Report 7656914-2 (Version None)
Quarter: 2011Q3

REPORT INFORMATION
  Report Type: 
  Country: None (occurrence: None)
  Receive Date: 20110802
  Receipt Date: 20110719
  Transmission Date: 20111222
  Serious: Yes (Death)
  Sender: FDA-Public Use
  Company Number: JP-2011-11207

PATIENT
  Age: 81 Year
  Sex: Male

DRUGS (22)
  1. PARIET (SODIUM RABEPRAZOLE) [Concomitant]
  2. PANTOL (PANTHENOL) [Concomitant]
  3. TAMSULOSIN HCL [Concomitant]
  4. ALLOPURINOL [Concomitant]
  5. AMOBAN (ZOPICLONE) [Concomitant]
  6. DOBUPUM (DOBUTAMINE HYDROCHLORIDE) [Concomitant]
  7. SOLITA-T NO.4 (POSTOPERATIVE RECOVERY MEDIUM) [Concomitant]
  8. ROCEPHIN (CEFTRIAXONE SODIUM HYDRATE) [Concomitant]
  9. PIMOBENDAN [Concomitant]
  10. DEXMEDETOMIDINE HYDROCHLORIDE [Concomitant]
  11. LASIX [Concomitant]
  12. HEPARIN AND PREPARATIONS [Concomitant]
  13. MILRILA (MILRINONE) [Concomitant]
  14. SAMSCA [Suspect]
     Dosage: 3.75 MG MILLIGRAM(S), DAILY DOSE, ORAL : 7.5 MG MILLGRAM(S), DAILY DOSE, ORAL
     Route: 048
     Dates: start: 20110225, end: 20110225
  15. SAMSCA [Suspect]
     Dosage: 3.75 MG MILLIGRAM(S), DAILY DOSE, ORAL : 7.5 MG MILLGRAM(S), DAILY DOSE, ORAL
     Route: 048
     Dates: start: 20110226, end: 20110305
  16. ASPIRIN [Concomitant]
  17. WARFARIN (WARFARIN POTASSIUM) [Concomitant]
  18. ALDACTONE [Concomitant]
  19. UNASYN-S (SULBACTAM SODIUM_AMPICILLIN SODIUM) [Concomitant]
  20. PURSENNID (SENNOSIDE) [Concomitant]
  21. ZETIA [Concomitant]
  22. TRIAZOLAM [Concomitant]

REACTIONS (2)
  - BLOOD SODIUM INCREASED [None]
  - PNEUMONIA ASPIRATION [None]
